FAERS Safety Report 21022395 (Version 1)
Quarter: 2022Q2

REPORT INFORMATION
  Report Type: Report from Study
  Country: US (occurrence: None)
  Receive Date: 20220629
  Receipt Date: 20220629
  Transmission Date: 20220720
  Serious: Yes (Hospitalization)
  Sender: FDA-Public Use
  Company Number: US-ROCHE-3100047

PATIENT
  Age: 23 Year
  Sex: Female
  Weight: 80 kg

DRUGS (3)
  1. MYCOPHENOLATE MOFETIL [Suspect]
     Active Substance: MYCOPHENOLATE MOFETIL
     Indication: Product used for unknown indication
     Route: 065
  2. PF-06823859 [Suspect]
     Active Substance: PF-06823859
     Indication: Dermatomyositis
     Route: 042
     Dates: start: 20220105, end: 20220330
  3. IMMUNOGLOBULINS [Concomitant]
     Indication: Product used for unknown indication
     Route: 042

REACTIONS (4)
  - Cytopenia [Unknown]
  - Hepatic enzyme increased [Unknown]
  - Blood bilirubin increased [Unknown]
  - Ocular icterus [Unknown]

NARRATIVE: CASE EVENT DATE: 20220427
